FAERS Safety Report 6439299-9 (Version None)
Quarter: 2009Q4

REPORT INFORMATION
  Report Type: 
  Country: None (occurrence: None)
  Receive Date: 20091110
  Receipt Date: 20091026
  Transmission Date: 20100525
  Serious: Yes (Death, Hospitalization)
  Sender: FDA-Public Use
  Company Number: 2009AC000336

PATIENT
  Age: 76 Year
  Sex: Female

DRUGS (28)
  1. DIGOXIN [Suspect]
     Dosage: .125 MG; PO
     Route: 048
     Dates: start: 20040501
  2. PLAVIX [Concomitant]
  3. PREDNISONE TAB [Concomitant]
  4. VYTORIN [Concomitant]
  5. MICRO-K [Concomitant]
  6. CORDARONE [Concomitant]
  7. ASPIRIN [Concomitant]
  8. AMIODARONE HCL [Concomitant]
  9. TRAMADOL HCL [Concomitant]
  10. POTASSIUM [Concomitant]
  11. NYSTATIN [Concomitant]
  12. BENEFIBERM PACERONE [Concomitant]
  13. ZOCOR [Concomitant]
  14. FLEXERIL [Concomitant]
  15. LIDODERM [Concomitant]
  16. ERGOCALCIFEROL [Concomitant]
  17. DURAGESIC-100 [Concomitant]
  18. DARVOCET [Concomitant]
  19. MINITRAN [Concomitant]
  20. GLYCOLAX [Concomitant]
  21. LISINOPRIL [Concomitant]
  22. FUROSEMIDE [Concomitant]
  23. AMIODARONE HCL [Concomitant]
  24. PROPRANOLOL [Concomitant]
  25. NITROGLYCERIN [Concomitant]
  26. ERYTHROMYCIN [Concomitant]
  27. LIPITOR [Concomitant]
  28. KETOCONAZOLE [Concomitant]

REACTIONS (41)
  - ABDOMINAL PAIN [None]
  - ALOPECIA [None]
  - ANAEMIA [None]
  - BACK PAIN [None]
  - BALANCE DISORDER [None]
  - BREAST CANCER [None]
  - CARDIAC ARREST [None]
  - CAROTID ARTERY ANEURYSM [None]
  - CELLULITIS [None]
  - CONFUSIONAL STATE [None]
  - CONSTIPATION [None]
  - CONTUSION [None]
  - DIABETES MELLITUS [None]
  - DIARRHOEA [None]
  - DIZZINESS [None]
  - DYSPHONIA [None]
  - ECONOMIC PROBLEM [None]
  - FACET JOINT SYNDROME [None]
  - FALL [None]
  - HAEMORRHAGE [None]
  - HEPATIC NEOPLASM [None]
  - HYPOTENSION [None]
  - INSOMNIA [None]
  - JOINT SWELLING [None]
  - LOSS OF CONSCIOUSNESS [None]
  - MULTIPLE INJURIES [None]
  - MYOCARDIAL INFARCTION [None]
  - NECK PAIN [None]
  - OEDEMA [None]
  - PLEURAL EFFUSION [None]
  - POLLAKIURIA [None]
  - RENAL DISORDER [None]
  - RENAL FAILURE ACUTE [None]
  - RESTLESSNESS [None]
  - RETROPERITONEAL NEOPLASM [None]
  - SINUS HEADACHE [None]
  - SKIN LESION [None]
  - SURGERY [None]
  - SYNCOPE [None]
  - THERAPEUTIC AGENT TOXICITY [None]
  - URINARY INCONTINENCE [None]
